FAERS Safety Report 10670154 (Version 1)
Quarter: 2014Q4

REPORT INFORMATION
  Report Type: Report from Study
  Country: US (occurrence: US)
  Receive Date: 20141223
  Receipt Date: 20141223
  Transmission Date: 20150529
  Serious: Yes (Other)
  Sender: FDA-Public Use
  Company Number: US-AMGEN INC.-USASL2014099000

PATIENT
  Age: 72 Year
  Sex: Female
  Weight: 68.03 kg

DRUGS (1)
  1. ENBREL [Suspect]
     Active Substance: ETANERCEPT
     Indication: RHEUMATOID ARTHRITIS
     Dosage: 50 MG, QWK
     Route: 058

REACTIONS (6)
  - Bronchitis [Unknown]
  - Rheumatoid arthritis [Unknown]
  - Asthma [Unknown]
  - Ear infection [Unknown]
  - Sinusitis [Recovering/Resolving]
  - Lung disorder [Unknown]

NARRATIVE: CASE EVENT DATE: 2014
